FAERS Safety Report 9426718 (Version 1)
Quarter: 2013Q3

REPORT INFORMATION
  Report Type: Spontaneous
  Country: US (occurrence: US)
  Receive Date: 20130730
  Receipt Date: 20130730
  Transmission Date: 20140515
  Serious: Yes (Other)
  Sender: FDA-Public Use
  Company Number: US-SANOFI-AVENTIS-2012SA083528

PATIENT
  Age: 75 Year
  Sex: Female

DRUGS (4)
  1. AMBIEN [Suspect]
     Route: 048
  2. ALCAFTADINE [Suspect]
     Indication: LACRIMATION INCREASED
     Route: 065
  3. GUAIFENESIN DM [Concomitant]
  4. HYDROXYZINE [Concomitant]

REACTIONS (3)
  - Hallucination [Unknown]
  - Insomnia [Unknown]
  - Wrong technique in drug usage process [Unknown]
